FAERS Safety Report 7202423-4 (Version None)
Quarter: 2010Q4

REPORT INFORMATION
  Report Type: 
  Country: None (occurrence: None)
  Receive Date: 20101229
  Receipt Date: 20101223
  Transmission Date: 20110411
  Serious: Yes (Death)
  Sender: FDA-Public Use
  Company Number: A0900533A

PATIENT
  Age: 73 Year
  Sex: Female

DRUGS (6)
  1. PROMACTA [Suspect]
     Indication: IDIOPATHIC THROMBOCYTOPENIC PURPURA
     Dosage: 50MG PER DAY
     Route: 048
     Dates: start: 20100601, end: 20100731
  2. ALLOPURINOL [Concomitant]
  3. CALCIUM [Concomitant]
  4. ERGOCALCIFEROL [Concomitant]
  5. LABETALOL [Concomitant]
  6. LEVOTHYROXINE [Concomitant]

REACTIONS (1)
  - MYOCARDIAL INFARCTION [None]
